FAERS Safety Report 20579619 (Version 1)
Quarter: 2022Q1

REPORT INFORMATION
  Report Type: Spontaneous
  Country: FR (occurrence: FR)
  Receive Date: 20220310
  Receipt Date: 20220310
  Transmission Date: 20220423
  Serious: Yes (Other)
  Sender: FDA-Public Use
  Company Number: None

PATIENT
  Age: 82 Year
  Sex: Female

DRUGS (4)
  1. PAXLOVID [Interacting]
     Active Substance: NIRMATRELVIR\RITONAVIR
     Indication: COVID-19 treatment
     Dosage: UNK
     Route: 048
     Dates: start: 20220218, end: 20220222
  2. DIGOXIN [Interacting]
     Active Substance: DIGOXIN
     Indication: Arrhythmia supraventricular
     Dosage: 1X/DAY (EVENING)
     Route: 048
     Dates: end: 20220222
  3. DIGOXIN [Interacting]
     Active Substance: DIGOXIN
     Indication: Atrial fibrillation
  4. DIGOXIN [Interacting]
     Active Substance: DIGOXIN
     Indication: Atrial flutter

REACTIONS (2)
  - Drug interaction [Recovered/Resolved]
  - Cardioactive drug level increased [Recovered/Resolved]

NARRATIVE: CASE EVENT DATE: 20220223
